FAERS Safety Report 9552650 (Version 1)
Quarter: 2013Q3

REPORT INFORMATION
  Report Type: Spontaneous
  Country: US (occurrence: None)
  Receive Date: 20130724
  Receipt Date: 20130724
  Transmission Date: 20140515
  Serious: Yes (Other)
  Sender: FDA-Public Use
  Company Number: PHEH2012US015126

PATIENT
  Age: 70 Year
  Sex: Female

DRUGS (7)
  1. GLEEVEC (IMATINIB)(UNKNOWN) [Suspect]
     Indication: CHRONIC MYELOID LEUKAEMIA
     Route: 048
     Dates: start: 20120420, end: 20130224
  2. ALTACE (RAMIPRIL) [Concomitant]
  3. ATENOL (ATENOL) [Concomitant]
  4. DIOVAN (VALSARTAN) [Concomitant]
  5. NEXUM (ESOMEPRAZOLE MAGNESIUM) [Concomitant]
  6. SYNTHROID (LEVOTHYROXINE SODIUM) [Concomitant]
  7. HUMALOG (INSULIN LISPRO) [Concomitant]

REACTIONS (5)
  - Oedema peripheral [None]
  - Swelling [None]
  - Fluid retention [None]
  - Diarrhoea [None]
  - Joint swelling [None]
